FAERS Safety Report 24944144 (Version 1)
Quarter: 2025Q1

REPORT INFORMATION
  Report Type: Spontaneous
  Country: TW (occurrence: TW)
  Receive Date: 20250207
  Receipt Date: 20250207
  Transmission Date: 20250409
  Serious: Yes (Other)
  Sender: ALEXION PHARMACEUTICALS
  Company Number: TW-AstraZeneca-CH-00801413A

PATIENT
  Age: 71 Year

DRUGS (2)
  1. DAPAGLIFLOZIN [Suspect]
     Active Substance: DAPAGLIFLOZIN
     Indication: Diabetic nephropathy
  2. INSULIN NOS [Suspect]
     Active Substance: INSULIN NOS
     Indication: Blood glucose abnormal

REACTIONS (4)
  - Diabetic ketoacidosis [Unknown]
  - Loss of consciousness [Unknown]
  - Pyrexia [Unknown]
  - Infection [Unknown]
